FAERS Safety Report 24826596 (Version 1)
Quarter: 2025Q1

REPORT INFORMATION
  Report Type: Spontaneous
  Country: US (occurrence: US)
  Receive Date: 20250109
  Receipt Date: 20250109
  Transmission Date: 20250409
  Serious: Yes (Other)
  Sender: COOPERSURGICAL
  Company Number: US-COOPERSURGICAL, INC.-US-2024CPS000348

PATIENT
  Age: 32 Year
  Sex: Female
  Weight: 111.11 kg

DRUGS (3)
  1. PARAGARD T 380A [Suspect]
     Active Substance: COPPER
     Indication: Product used for unknown indication
     Route: 015
     Dates: start: 20240131, end: 20240131
  2. MAGNESIUM [Concomitant]
     Active Substance: MAGNESIUM
     Indication: Product used for unknown indication
     Route: 065
  3. CULTURELLE PROBIOTICS HEALTH + WELLNESS [Concomitant]
     Indication: Product used for unknown indication
     Route: 065

REACTIONS (3)
  - Off label use [Unknown]
  - Complication of device insertion [Recovered/Resolved]
  - Procedural pain [Recovered/Resolved]

NARRATIVE: CASE EVENT DATE: 20240131
